FAERS Safety Report 6076439-8 (Version None)
Quarter: 2009Q1

REPORT INFORMATION
  Report Type: 
  Country: None (occurrence: None)
  Receive Date: 20090212
  Receipt Date: 20090212
  Transmission Date: 20090719
  Serious: No
  Sender: FDA-Public Use
  Company Number: None

PATIENT
  Age: 45 Year
  Sex: Male
  Weight: 101.6057 kg

DRUGS (2)
  1. OXYCODONE AND ACETAMINOPHEN [Suspect]
     Indication: BACK PAIN
     Dosage: 10 MG/ 325 5X DAILY ORAL 5 YRS AGO ?
     Route: 048
  2. OXYCODONE AND ACETAMINOPHEN [Suspect]
     Indication: HIV PERIPHERAL NEUROPATHY
     Dosage: 10 MG/ 325 5X DAILY ORAL 5 YRS AGO ?
     Route: 048

REACTIONS (3)
  - DRUG EFFECT DECREASED [None]
  - INADEQUATE ANALGESIA [None]
  - THERAPEUTIC RESPONSE UNEXPECTED WITH DRUG SUBSTITUTION [None]
